FAERS Safety Report 8779514 (Version 1)
Quarter: 2012Q4

REPORT INFORMATION
  Report Type: 
  Country: US (occurrence: US)
  Receive Date: 20120912
  Receipt Date: 20120912
  Transmission Date: 20130627
  Serious: Yes (Other)
  Sender: FDA-Public Use
  Company Number: US-ROCHE-1100908

PATIENT
  Age: 57 Year
  Sex: Male
  Weight: 99.88 kg

DRUGS (12)
  1. ACTIVASE [Suspect]
     Indication: ACUTE MYOCARDIAL INFARCTION
     Route: 065
  2. ACTIVASE [Suspect]
     Route: 065
  3. ACTIVASE [Suspect]
     Route: 065
  4. NITROGLYCERINE [Concomitant]
     Route: 065
  5. NITROGLYCERINE [Concomitant]
     Route: 065
  6. NITROGLYCERINE [Concomitant]
     Route: 065
  7. NITROGLYCERINE [Concomitant]
     Route: 065
  8. NITROGLYCERINE [Concomitant]
     Route: 065
  9. NITROGLYCERINE [Concomitant]
     Route: 065
  10. NITROGLYCERINE [Concomitant]
     Route: 065
  11. DEMEROL [Concomitant]
     Route: 042
  12. LASIX [Concomitant]
     Route: 065

REACTIONS (2)
  - Hypertension [Unknown]
  - Nausea [Unknown]
